FAERS Safety Report 9798886 (Version 2)
Quarter: 2014Q1

REPORT INFORMATION
  Report Type: Spontaneous
  Country: US (occurrence: US)
  Receive Date: 20140106
  Receipt Date: 20140106
  Transmission Date: 20141002
  Serious: No
  Sender: FDA-Public Use
  Company Number: US-GILEAD-2010-0033518

PATIENT
  Age: 67 Year
  Sex: Female

DRUGS (9)
  1. LETAIRIS [Suspect]
     Indication: PULMONARY ARTERIAL HYPERTENSION
     Route: 048
     Dates: start: 20101022, end: 20101029
  2. LASIX [Concomitant]
  3. CRESTOR [Concomitant]
  4. BENTYL [Concomitant]
  5. PREVACID [Concomitant]
  6. TYLOX [Concomitant]
  7. GABITRIL [Concomitant]
  8. PREDNISOLONE [Concomitant]
  9. KLOR-CON [Concomitant]

REACTIONS (2)
  - Malaise [Unknown]
  - Palpitations [Recovered/Resolved]
